FAERS Safety Report 14370109 (Version 2)
Quarter: 2018Q2

REPORT INFORMATION
  Report Type: Report from Study
  Country: US (occurrence: US)
  Receive Date: 20180110
  Receipt Date: 20180628
  Transmission Date: 20180711
  Serious: Yes (Hospitalization)
  Sender: FDA-Public Use
  Company Number: US-ASTRAZENECA-2017SF23795

PATIENT
  Age: 808 Month
  Sex: Male
  Weight: 66.2 kg

DRUGS (19)
  1. ZINC SULFATE [Concomitant]
     Active Substance: ZINC SULFATE\ZINC SULFATE ANHYDROUS
  2. AVASTIN [Concomitant]
     Active Substance: BEVACIZUMAB
     Dosage: MARCH TO APRIL 2016.
  3. LYNPARZA [Suspect]
     Active Substance: OLAPARIB
     Indication: BRCA2 GENE MUTATION
     Route: 048
     Dates: start: 20180101
  4. PERCOCET [Concomitant]
     Active Substance: ACETAMINOPHEN\OXYCODONE HYDROCHLORIDE
     Indication: PAIN
     Route: 048
  5. LOVENOX [Concomitant]
     Active Substance: ENOXAPARIN SODIUM
     Indication: THROMBOSIS
     Route: 048
  6. LYNPARZA [Suspect]
     Active Substance: OLAPARIB
     Indication: BRCA2 GENE MUTATION
     Route: 048
     Dates: start: 201708
  7. LYNPARZA [Suspect]
     Active Substance: OLAPARIB
     Indication: LUNG NEOPLASM MALIGNANT
     Route: 048
     Dates: start: 20170714
  8. LYNPARZA [Suspect]
     Active Substance: OLAPARIB
     Indication: LUNG NEOPLASM MALIGNANT
     Route: 048
     Dates: start: 20180101
  9. CARBOPLATIN. [Concomitant]
     Active Substance: CARBOPLATIN
  10. LYNPARZA [Suspect]
     Active Substance: OLAPARIB
     Indication: METASTASES TO BONE
     Route: 048
     Dates: start: 20180101
  11. LYNPARZA [Suspect]
     Active Substance: OLAPARIB
     Indication: LUNG CARCINOMA CELL TYPE UNSPECIFIED STAGE 0
     Route: 048
     Dates: start: 201708
  12. LYNPARZA [Suspect]
     Active Substance: OLAPARIB
     Indication: LUNG NEOPLASM MALIGNANT
     Route: 048
     Dates: start: 201708
  13. LYNPARZA [Suspect]
     Active Substance: OLAPARIB
     Indication: METASTASES TO BONE
     Route: 048
     Dates: start: 201708
  14. LYNPARZA [Suspect]
     Active Substance: OLAPARIB
     Indication: LUNG CARCINOMA CELL TYPE UNSPECIFIED STAGE 0
     Route: 048
     Dates: start: 20170714
  15. LYNPARZA [Suspect]
     Active Substance: OLAPARIB
     Indication: LUNG CARCINOMA CELL TYPE UNSPECIFIED STAGE 0
     Route: 048
     Dates: start: 20180101
  16. AVASTIN [Concomitant]
     Active Substance: BEVACIZUMAB
     Dosage: SEPT OCT 2016 AVASTIN
  17. LYNPARZA [Suspect]
     Active Substance: OLAPARIB
     Indication: BRCA2 GENE MUTATION
     Route: 048
     Dates: start: 20170714
  18. LYNPARZA [Suspect]
     Active Substance: OLAPARIB
     Indication: METASTASES TO BONE
     Route: 048
     Dates: start: 20170714
  19. ALIMTA [Concomitant]
     Active Substance: PEMETREXED DISODIUM
     Dosage: ONLY EARLY 2017

REACTIONS (10)
  - Musculoskeletal pain [Recovered/Resolved]
  - Lung infection [Unknown]
  - Constipation [Not Recovered/Not Resolved]
  - Thrombosis [Recovered/Resolved]
  - Colitis [Unknown]
  - Weight decreased [Unknown]
  - Product use issue [Unknown]
  - Hiatus hernia [Unknown]
  - Pleural effusion [Unknown]
  - Off label use [Not Recovered/Not Resolved]

NARRATIVE: CASE EVENT DATE: 201708
